FAERS Safety Report 14785073 (Version 2)
Quarter: 2018Q2

REPORT INFORMATION
  Report Type: Spontaneous
  Country: US (occurrence: US)
  Receive Date: 20180420
  Receipt Date: 20180627
  Transmission Date: 20180711
  Serious: No
  Sender: FDA-Public Use
  Company Number: US-MYLANLABS-2018M1017191

PATIENT
  Age: 73 Year
  Sex: Male
  Weight: 88.44 kg

DRUGS (1)
  1. PREDNISONE TABLETS USP [Suspect]
     Active Substance: PREDNISONE
     Indication: SARCOIDOSIS
     Dosage: 20 MG, TID
     Route: 048

REACTIONS (8)
  - Dizziness [Unknown]
  - Muscular weakness [Unknown]
  - Feeling abnormal [Unknown]
  - Increased appetite [Unknown]
  - Lethargy [Unknown]
  - Insomnia [Unknown]
  - Balance disorder [Unknown]
  - Joint swelling [Unknown]
